FAERS Safety Report 5748780-7 (Version None)
Quarter: 2008Q2

REPORT INFORMATION
  Report Type: 
  Country: None (occurrence: None)
  Receive Date: 20080521
  Receipt Date: 20080515
  Transmission Date: 20081010
  Serious: Yes (Other)
  Sender: FDA-Public Use
  Company Number: GXKR2008DE04403

PATIENT
  Age: 51 Year
  Sex: Female

DRUGS (1)
  1. MCP HEXAL (NGX)(METOCLOPRAMIDE) ORAL SOLUTION, 4MG/ML [Suspect]
     Dosage: 10 MG, QD, ORAL
     Route: 048

REACTIONS (2)
  - CARDIOVASCULAR DISORDER [None]
  - LOSS OF CONSCIOUSNESS [None]
